FAERS Safety Report 4449028-6 (Version None)
Quarter: 2004Q3

REPORT INFORMATION
  Report Type: 
  Country: None (occurrence: None)
  Receive Date: 20040909
  Receipt Date: 20040819
  Transmission Date: 20050211
  Serious: Yes (Other)
  Sender: FDA-Public Use
  Company Number: USA040875992

PATIENT
  Age: 79 Year
  Sex: Female
  Weight: 73 kg

DRUGS (3)
  1. FORTEO [Suspect]
     Indication: OSTEOPOROSIS
     Dosage: 20 UG 1 DAY
     Dates: start: 20040101
  2. ASPIRIN [Concomitant]
  3. MULTIVITAMIN [Concomitant]

REACTIONS (10)
  - CONFUSIONAL STATE [None]
  - DEPRESSED MOOD [None]
  - DRUG RESISTANCE [None]
  - HYPERTENSION [None]
  - LUNG DISORDER [None]
  - MEMORY IMPAIRMENT [None]
  - OXYGEN SATURATION DECREASED [None]
  - PNEUMONIA [None]
  - SCAR [None]
  - UNEXPECTED THERAPEUTIC DRUG EFFECT [None]
